FAERS Safety Report 5795302-0 (Version None)
Quarter: 2008Q2

REPORT INFORMATION
  Report Type: 
  Country: None (occurrence: None)
  Receive Date: 20080630
  Receipt Date: 20080619
  Transmission Date: 20081010
  Serious: Yes (Other)
  Sender: FDA-Public Use
  Company Number: JP-PFIZER INC-2008036250

PATIENT
  Sex: Male
  Weight: 48 kg

DRUGS (7)
  1. DIFLUCAN [Suspect]
     Indication: CANDIDURIA
     Dates: start: 20080409, end: 20080421
  2. VANCOMYCIN [Suspect]
     Indication: METHICILLIN-RESISTANT STAPHYLOCOCCAL AUREUS TEST POSITIVE
     Route: 048
     Dates: start: 20080419, end: 20080508
  3. VANCOMYCIN [Suspect]
     Route: 042
     Dates: start: 20080425, end: 20080507
  4. PIPERACILLIN AND TAZOBACTAM [Suspect]
     Indication: PNEUMONIA
     Dosage: DAILY DOSE:1.25GRAM
     Route: 042
     Dates: start: 20080129, end: 20080411
  5. CIPROFLOXACIN HCL [Suspect]
     Indication: PSEUDOMONAS INFECTION
     Dosage: DAILY DOSE:150MG
     Route: 042
     Dates: start: 20080425, end: 20080507
  6. CEFOPERAZONE SODIUM/SULBACTAM SODIUM [Suspect]
     Indication: PNEUMONIA
     Route: 042
     Dates: start: 20080306, end: 20080318
  7. GENTAMICIN [Suspect]
     Indication: METHICILLIN-RESISTANT STAPHYLOCOCCAL AUREUS TEST POSITIVE
     Route: 042
     Dates: start: 20080414, end: 20080421

REACTIONS (1)
  - PSEUDOMEMBRANOUS COLITIS [None]
